FAERS Safety Report 9515894 (Version 1)
Quarter: 2013Q1

REPORT INFORMATION
  Report Type: Spontaneous
  Country: US (occurrence: None)
  Receive Date: 20130305
  Receipt Date: 20130305
  Transmission Date: 20140127
  Serious: Yes (Hospitalization)
  Sender: FDA-Public Use
  Company Number: 163-21880-12113205

PATIENT
  Age: 71 Year
  Sex: Female

DRUGS (9)
  1. REVLIMID [Suspect]
     Indication: PLASMA CELL MYELOMA
     Route: 048
     Dates: start: 20120726
  2. ALBUTEROL SULFATE (SALBUTAMOL SULFATE) (UNKNOWN) [Concomitant]
  3. ASPIRIN CHILDRENS (UNKNOWN) [Concomitant]
  4. BUDESONIDE (BUDESONIDE) (UNKNOWN) [Concomitant]
  5. CALCIUM 600 (UNKNOWN) [Concomitant]
  6. DEPAKOTE (VALPROATE SEMISODIUM) (UNKNOWN) [Concomitant]
  7. DILAUDID (HYDROMORPHONE HYDROCHLORIDE) (UNKNOWN) [Concomitant]
  8. FUROSEMIDE (FUROSEMIDE) (UNKNOWN) [Concomitant]
  9. METOPROLOL (HYDROCHLOROTHIAZIDE (CO-BETALOC) (UNKNOWN) [Concomitant]

REACTIONS (3)
  - Infection [None]
  - Platelet count decreased [None]
  - White blood cell count decreased [None]
